FAERS Safety Report 7229431-1 (Version None)
Quarter: 2011Q1

REPORT INFORMATION
  Report Type: 
  Country: None (occurrence: None)
  Receive Date: 20110117
  Receipt Date: 20110112
  Transmission Date: 20110831
  Serious: Yes (Hospitalization, Other)
  Sender: FDA-Public Use
  Company Number: B0691503A

PATIENT
  Sex: Male

DRUGS (1)
  1. IMIJECT [Suspect]
     Route: 065

REACTIONS (1)
  - DEVICE FAILURE [None]
